FAERS Safety Report 7961102-6 (Version None)
Quarter: 2011Q4

REPORT INFORMATION
  Report Type: 
  Country: None (occurrence: None)
  Receive Date: 20111202
  Receipt Date: 20111117
  Transmission Date: 20120403
  Serious: Yes (Other)
  Sender: FDA-Public Use
  Company Number: 1000025748

PATIENT
  Age: 31 Year
  Sex: Female

DRUGS (5)
  1. LEVOTHYROX (LEVOTHYROXINE) [Concomitant]
  2. ESCITALOPRAM OXALATE [Suspect]
     Indication: DEPRESSION
     Dosage: ORAL
     Route: 048
  3. LANTUS (INSULIN GLARGINE) (INSULIN GLARGINE) [Concomitant]
  4. HUMALOG [Concomitant]
  5. MEDIATOR (BENFLUOREX) [Suspect]
     Indication: PRODUCT USED FOR UNKNOWN INDICATION
     Dosage: ORAL
     Route: 048

REACTIONS (4)
  - PULMONARY HYPERTENSION [None]
  - PULMONARY ARTERIAL WEDGE PRESSURE INCREASED [None]
  - COUGH [None]
  - TRICUSPID VALVE INCOMPETENCE [None]
